FAERS Safety Report 6174209-3 (Version None)
Quarter: 2009Q2

REPORT INFORMATION
  Report Type: 
  Country: None (occurrence: None)
  Receive Date: 20090430
  Receipt Date: 20080415
  Transmission Date: 20091009
  Serious: No
  Sender: FDA-Public Use
  Company Number: US-ASTRAZENECA-2008UW06118

PATIENT
  Age: 54 Year
  Sex: Female
  Weight: 79.4 kg

DRUGS (3)
  1. NEXIUM [Suspect]
     Indication: GASTROOESOPHAGEAL REFLUX DISEASE
     Route: 048
     Dates: start: 20020101
  2. PROVENTIL [Concomitant]
  3. ADVAIR HFA [Concomitant]

REACTIONS (2)
  - ASTHMA [None]
  - WHEEZING [None]
